FAERS Safety Report 4964116-3 (Version None)
Quarter: 2006Q1

REPORT INFORMATION
  Report Type: 
  Country: None (occurrence: None)
  Receive Date: 20060330
  Receipt Date: 20060313
  Transmission Date: 20060701
  Serious: Yes (Hospitalization)
  Sender: FDA-Public Use
  Company Number: US200603003581

PATIENT
  Sex: Female

DRUGS (2)
  1. FORTEO [Suspect]
     Dates: start: 20060127
  2. FORTEO PEN (FORTEO PEN)) PEN, DISPOSABLE [Concomitant]

REACTIONS (2)
  - ABDOMINAL PAIN LOWER [None]
  - DIVERTICULITIS [None]
